FAERS Safety Report 7905149-4 (Version None)
Quarter: 2011Q4

REPORT INFORMATION
  Report Type: 
  Country: None (occurrence: None)
  Receive Date: 20111109
  Receipt Date: 20111101
  Transmission Date: 20120403
  Serious: Yes (Other)
  Sender: FDA-Public Use
  Company Number: US-BAYER-2011-106147

PATIENT

DRUGS (5)
  1. AZITHROMYCIN [Suspect]
  2. ZIPRASIDONE HCL [Suspect]
     Route: 048
  3. ACETAMINOPHEN [Suspect]
  4. AVELOX [Suspect]
  5. HYDROCODONE BITARTRATE [Suspect]

REACTIONS (1)
  - ELECTROCARDIOGRAM QT PROLONGED [None]
